FAERS Safety Report 7269513-1 (Version None)
Quarter: 2011Q1

REPORT INFORMATION
  Report Type: 
  Country: None (occurrence: None)
  Receive Date: 20110202
  Receipt Date: 20101220
  Transmission Date: 20110831
  Serious: Yes (Other)
  Sender: FDA-Public Use
  Company Number: US-BAYER-201028000NA

PATIENT
  Sex: Female

DRUGS (8)
  1. PHENERGAN [Concomitant]
  2. DIFLUCAN [Concomitant]
  3. VICODIN [Concomitant]
  4. BACTRIN [Concomitant]
  5. YASMIN [Suspect]
     Indication: PRODUCT USED FOR UNKNOWN INDICATION
     Dosage: UNK UNK, UNK
     Route: 048
     Dates: end: 20060101
  6. FLAGYL [Concomitant]
  7. YAZ [Suspect]
     Indication: PRODUCT USED FOR UNKNOWN INDICATION
     Dosage: UNK UNK, UNK
     Route: 048
     Dates: start: 20060101, end: 20090101
  8. PROTONIX [Concomitant]
     Indication: GASTROOESOPHAGEAL REFLUX DISEASE
     Dosage: UNK
     Dates: start: 20060601

REACTIONS (10)
  - HYPOMENORRHOEA [None]
  - FATIGUE [None]
  - ANXIETY [None]
  - METRORRHAGIA [None]
  - GALLBLADDER DISORDER [None]
  - CHEST PAIN [None]
  - DIZZINESS [None]
  - ABDOMINAL PAIN LOWER [None]
  - NAUSEA [None]
  - WEIGHT LOSS POOR [None]
